FAERS Safety Report 5638754-9 (Version None)
Quarter: 2008Q1

REPORT INFORMATION
  Report Type: 
  Country: None (occurrence: None)
  Receive Date: 20080226
  Receipt Date: 20080215
  Transmission Date: 20080703
  Serious: Yes (Other)
  Sender: FDA-Public Use
  Company Number: US-JNJFOC-20071110304

PATIENT
  Sex: Male
  Weight: 70.76 kg

DRUGS (7)
  1. DURAGESIC-100 [Suspect]
     Route: 062
  2. DURAGESIC-100 [Suspect]
     Indication: PAIN
     Route: 062
  3. DILAUDID [Suspect]
     Indication: PAIN
     Dosage: EVERY 4 HOURS AS NEEDED
     Route: 048
  4. PHENERGAN HCL [Concomitant]
     Indication: NAUSEA
     Route: 048
  5. NEXIUM [Concomitant]
     Indication: GASTROOESOPHAGEAL REFLUX DISEASE
     Route: 048
  6. BENZODIAZEPINE [Concomitant]
     Indication: DRUG USE FOR UNKNOWN INDICATION
     Route: 048
  7. MUSCLE RELAXER [Concomitant]
     Indication: MUSCLE SPASMS
     Route: 048

REACTIONS (11)
  - ABDOMINAL PAIN [None]
  - APPLICATION SITE PRURITUS [None]
  - BACK PAIN [None]
  - BREAKTHROUGH PAIN [None]
  - BRONCHITIS [None]
  - COUGH [None]
  - DRUG TOLERANCE [None]
  - INAPPROPRIATE SCHEDULE OF DRUG ADMINISTRATION [None]
  - PAIN MANAGEMENT [None]
  - PULMONARY CONGESTION [None]
  - WRONG TECHNIQUE IN DRUG USAGE PROCESS [None]
